FAERS Safety Report 8955666 (Version 3)
Quarter: 2013Q1

REPORT INFORMATION
  Report Type: Report from Study
  Country: US (occurrence: US)
  Receive Date: 20121207
  Receipt Date: 20130116
  Transmission Date: 20140127
  Serious: No
  Sender: FDA-Public Use
  Company Number: US-VERTEX PHARMACEUTICALS INC.-2012-025696

PATIENT
  Age: 43 Year
  Sex: Female
  Weight: 70 kg

DRUGS (9)
  1. VX-950 (TELAPREVIR) [Suspect]
     Indication: HEPATITIS C
     Dosage: 750 MG, TID
     Route: 048
  2. RIBAVIRIN [Suspect]
     Indication: HEPATITIS C
     Dosage: 200 MG, UNK
  3. PEGASYS [Suspect]
     Indication: HEPATITIS C
  4. CELEXA                             /00582602/ [Concomitant]
     Dosage: 40 MG, UNK
  5. KLONOPIN [Concomitant]
     Dosage: 0.5 MG, UNK
  6. FLEXERIL                           /00428402/ [Concomitant]
     Dosage: 10 MG, UNK
  7. LAMICTAL [Concomitant]
     Dosage: 2 MG, UNK
  8. CLARITIN                           /00413701/ [Concomitant]
     Dosage: 10 MG, UNK
  9. ADVIL                              /00109201/ [Concomitant]
     Dosage: 200 MG, UNK

REACTIONS (11)
  - Sinus headache [Unknown]
  - Headache [Unknown]
  - Muscular weakness [Unknown]
  - Influenza like illness [Unknown]
  - Oligomenorrhoea [Unknown]
  - Hypoaesthesia [Unknown]
  - Epistaxis [Unknown]
  - Abdominal pain upper [Unknown]
  - Irritability [Unknown]
  - Fatigue [Unknown]
  - Diarrhoea [Unknown]
